FAERS Safety Report 19608359 (Version 1)
Quarter: 2021Q3

REPORT INFORMATION
  Report Type: Spontaneous
  Country: CN (occurrence: CN)
  Receive Date: 20210726
  Receipt Date: 20210726
  Transmission Date: 20211014
  Serious: Yes (Hospitalization, Other)
  Sender: FDA-Public Use
  Company Number: CN-ASTELLAS-2021US027387

PATIENT
  Age: 78 Year
  Sex: Male

DRUGS (2)
  1. ZOLADEX [Suspect]
     Active Substance: GOSERELIN ACETATE
     Indication: CEREBRAL HAEMORRHAGE
     Dosage: UNK UNK, UNKNOWN FREQ.
     Route: 042
     Dates: start: 20190819, end: 20210720
  2. XTANDI [Suspect]
     Active Substance: ENZALUTAMIDE
     Indication: PRODUCT USED FOR UNKNOWN INDICATION
     Dosage: UNK UNK, UNKNOWN FREQ.
     Route: 048
     Dates: start: 20210524, end: 20210720

REACTIONS (2)
  - Condition aggravated [Unknown]
  - Cerebral haemorrhage [Unknown]
